FAERS Safety Report 6084314-8 (Version None)
Quarter: 2009Q1

REPORT INFORMATION
  Report Type: 
  Country: None (occurrence: None)
  Receive Date: 20090219
  Receipt Date: 20090209
  Transmission Date: 20090719
  Serious: Yes (Hospitalization, Other)
  Sender: FDA-Public Use
  Company Number: GB-PFIZER INC-2009168007

PATIENT

DRUGS (2)
  1. ATORVASTATIN CALCIUM [Suspect]
     Route: 048
     Dates: start: 20081201
  2. RAMIPRIL [Concomitant]

REACTIONS (7)
  - ANGIOPLASTY [None]
  - CHEST PAIN [None]
  - DYSPNOEA [None]
  - MUSCULOSKELETAL PAIN [None]
  - MYOCARDIAL INFARCTION [None]
  - NECK PAIN [None]
  - PAIN IN EXTREMITY [None]
